FAERS Safety Report 14414313 (Version 2)
Quarter: 2018Q1

REPORT INFORMATION
  Report Type: Spontaneous
  Country: IT (occurrence: IT)
  Receive Date: 20180120
  Receipt Date: 20180206
  Transmission Date: 20180509
  Serious: Yes (Other)
  Sender: FDA-Public Use
  Company Number: IT-SUN PHARMACEUTICAL INDUSTRIES LTD-2018RR-160572

PATIENT
  Age: 53 Year
  Sex: Female

DRUGS (5)
  1. FEMARA [Suspect]
     Active Substance: LETROZOLE
     Indication: BREAST CANCER METASTATIC
     Dosage: 2.5 MG, DAILY
     Route: 065
  2. TRASTUZUMAB. [Suspect]
     Active Substance: TRASTUZUMAB
     Dosage: 6 MG/KG EVERY 3 WEEKS
     Route: 065
  3. TRASTUZUMAB. [Suspect]
     Active Substance: TRASTUZUMAB
     Dosage: 6 MG/KG, EVERY 3 WEEKS, GLOBALLY 156 CYCLES FOR MORE THAN 10 YEARS
     Route: 042
     Dates: end: 201509
  4. TDM-1 [Suspect]
     Active Substance: ADO-TRASTUZUMAB EMTANSINE
     Indication: BREAST CANCER METASTATIC
     Dosage: UNK
     Route: 065
  5. TRASTUZUMAB. [Suspect]
     Active Substance: TRASTUZUMAB
     Indication: BREAST CANCER METASTATIC
     Dosage: 8 MG/KG FIRST DOSE
     Route: 065
     Dates: start: 200606

REACTIONS (4)
  - Myalgia [Unknown]
  - Musculoskeletal stiffness [Unknown]
  - Disease progression [Unknown]
  - Drug effect incomplete [Unknown]
